FAERS Safety Report 21630678 (Version 2)
Quarter: 2022Q4

REPORT INFORMATION
  Report Type: Report from Study
  Country: AR (occurrence: AR)
  Receive Date: 20221123
  Receipt Date: 20221209
  Transmission Date: 20230113
  Serious: Yes (Other)
  Sender: FDA-Public Use
  Company Number: AR-BRISTOL-MYERS SQUIBB COMPANY-2022-141245

PATIENT
  Age: 77 Year
  Sex: Female

DRUGS (5)
  1. ELIQUIS [Suspect]
     Active Substance: APIXABAN
     Indication: Cerebrovascular accident prophylaxis
     Dosage: 5 MG 2X/DAY
     Route: 065
     Dates: start: 20180301
  2. CORBIS BISOPROLOL [Concomitant]
     Indication: Product used for unknown indication
     Route: 065
     Dates: start: 20180302
  3. COVERENE PERINDOPRIL [Concomitant]
     Indication: Product used for unknown indication
     Route: 065
     Dates: start: 20180301
  4. JARDIANCE [Concomitant]
     Active Substance: EMPAGLIFLOZIN
     Indication: Product used for unknown indication
     Route: 065
     Dates: start: 20220701
  5. LASIX [Concomitant]
     Active Substance: FUROSEMIDE
     Indication: Product used for unknown indication
     Route: 065
     Dates: start: 20220701

REACTIONS (4)
  - Sensitive skin [Unknown]
  - Swollen tongue [Not Recovered/Not Resolved]
  - Pharyngeal inflammation [Not Recovered/Not Resolved]
  - Dry skin [Not Recovered/Not Resolved]

NARRATIVE: CASE EVENT DATE: 20210101
